FAERS Safety Report 19402580 (Version 1)
Quarter: 2021Q2

REPORT INFORMATION
  Report Type: Spontaneous
  Country: US (occurrence: US)
  Receive Date: 20210611
  Receipt Date: 20210611
  Transmission Date: 20210717
  Serious: Yes (Hospitalization)
  Sender: FDA-Public Use
  Company Number: US-STRIDES ARCOLAB LIMITED-2020SP010190

PATIENT
  Age: 52 Year
  Sex: Female

DRUGS (5)
  1. MYCOPHENOLATE MOFETIL. [Suspect]
     Active Substance: MYCOPHENOLATE MOFETIL
     Indication: DERMATOMYOSITIS
     Dosage: UNK
     Route: 065
  2. PREDNISOLONE. [Suspect]
     Active Substance: PREDNISOLONE
     Indication: GRANULOMATOSIS WITH POLYANGIITIS
     Dosage: UNK
     Route: 065
  3. MYCOPHENOLATE MOFETIL. [Suspect]
     Active Substance: MYCOPHENOLATE MOFETIL
     Indication: INTERSTITIAL LUNG DISEASE
  4. HYDROXYCHLOROQUINE [Suspect]
     Active Substance: HYDROXYCHLOROQUINE
     Indication: DERMATOMYOSITIS
     Dosage: UNK
     Route: 065
  5. HYDROXYCHLOROQUINE [Suspect]
     Active Substance: HYDROXYCHLOROQUINE
     Indication: INTERSTITIAL LUNG DISEASE

REACTIONS (14)
  - Necrosis [Recovered/Resolved]
  - Pseudolymphoma [Unknown]
  - Off label use [Unknown]
  - Granulomatous dermatitis [Recovered/Resolved]
  - Diarrhoea [Unknown]
  - Microsporidia infection [Unknown]
  - Perivascular dermatitis [Recovered/Resolved]
  - Weight decreased [Unknown]
  - Granulomatosis with polyangiitis [Unknown]
  - Chronic sinusitis [Unknown]
  - Skin mass [Recovered/Resolved]
  - Gastroenteritis [Unknown]
  - Condition aggravated [Unknown]
  - Vasculitis necrotising [Unknown]
